FAERS Safety Report 5069678-6 (Version None)
Quarter: 2006Q3

REPORT INFORMATION
  Report Type: 
  Country: None (occurrence: None)
  Receive Date: 20060802
  Receipt Date: 20060802
  Transmission Date: 20061208
  Serious: Yes (Other)
  Sender: FDA-Public Use
  Company Number: None

PATIENT
  Age: 38 Year
  Sex: Male
  Weight: 77.1115 kg

DRUGS (1)
  1. CREST PRO-HEALTH RINSE [Suspect]
     Dosage: NOT SURE    TWICE PER DAY   DENTAL
     Route: 004
     Dates: start: 20060415, end: 20060515

REACTIONS (1)
  - TOOTH DISCOLOURATION [None]
